FAERS Safety Report 4495771-2 (Version None)
Quarter: 2004Q4

REPORT INFORMATION
  Report Type: 
  Country: None (occurrence: None)
  Receive Date: 20041104
  Receipt Date: 20041101
  Transmission Date: 20050328
  Serious: Yes (Death)
  Sender: FDA-Public Use
  Company Number: 200420931BWH

PATIENT

DRUGS (1)
  1. TRASYLOL [Suspect]

REACTIONS (1)
  - THROMBOSIS [None]
